FAERS Safety Report 6429365-6 (Version None)
Quarter: 2009Q4

REPORT INFORMATION
  Report Type: 
  Country: None (occurrence: None)
  Receive Date: 20091105
  Receipt Date: 20090420
  Transmission Date: 20100525
  Serious: No
  Sender: FDA-Public Use
  Company Number: US-ABBOTT-09P-163-0569131-00

PATIENT
  Sex: Female
  Weight: 64.468 kg

DRUGS (3)
  1. KALETRA [Suspect]
     Indication: HIV INFECTION
     Dosage: 4 AT NIGHT
     Dates: start: 20070101
  2. PREMARIN [Concomitant]
     Indication: DRUG USE FOR UNKNOWN INDICATION
     Dosage: FOR HYSTERECTOMY
  3. LIPITOR [Concomitant]
     Indication: BLOOD CHOLESTEROL
     Dates: start: 20081001

REACTIONS (3)
  - BLOOD CHOLESTEROL INCREASED [None]
  - HEADACHE [None]
  - THIRST [None]
